FAERS Safety Report 4971512-7 (Version None)
Quarter: 2006Q2

REPORT INFORMATION
  Report Type: 
  Country: None (occurrence: None)
  Receive Date: 20060413
  Receipt Date: 20060407
  Transmission Date: 20061013
  Serious: Yes (Hospitalization)
  Sender: FDA-Public Use
  Company Number: FR-AVENTIS-200611296FR

PATIENT
  Age: 83 Year
  Sex: Male

DRUGS (8)
  1. BIRODOGYL [Suspect]
     Indication: ORAL INFECTION
     Route: 048
     Dates: start: 20051220, end: 20051223
  2. FLAGYL [Suspect]
     Route: 048
     Dates: start: 20051224, end: 20051225
  3. OFLOCET [Suspect]
     Indication: BRONCHOPNEUMOPATHY
     Route: 048
     Dates: start: 20051222, end: 20051223
  4. OFLOCET [Suspect]
     Indication: INFECTION
     Route: 048
     Dates: start: 20051222, end: 20051223
  5. AUGMENTIN '125' [Suspect]
     Indication: BRONCHOPNEUMOPATHY
     Route: 048
     Dates: start: 20051222, end: 20051223
  6. AUGMENTIN '125' [Suspect]
     Indication: INFECTION
     Route: 048
     Dates: start: 20051222, end: 20051223
  7. ROVAMYCINE [Suspect]
     Route: 042
     Dates: start: 20051224, end: 20051224
  8. ROCEPHIN [Suspect]
     Route: 042
     Dates: start: 20051223, end: 20051225

REACTIONS (2)
  - ANAPHYLACTIC SHOCK [None]
  - URTICARIA [None]
